FAERS Safety Report 9555873 (Version 1)
Quarter: 2013Q3

REPORT INFORMATION
  Report Type: Spontaneous
  Country: US (occurrence: None)
  Receive Date: 20130724
  Receipt Date: 20130724
  Transmission Date: 20140515
  Serious: No
  Sender: FDA-Public Use
  Company Number: PHEH2013US006313

PATIENT
  Sex: Female
  Weight: 99.8 kg

DRUGS (2)
  1. GILENYA (FINGOLIMOD) CAPSULE, 0.5MG [Suspect]
     Indication: MULTIPLE SCLEROSIS
     Route: 048
     Dates: start: 20130207
  2. NUVIGIL (ARMODAFINIL) [Suspect]

REACTIONS (2)
  - Contusion [None]
  - Fatigue [None]
